FAERS Safety Report 5254285-2 (Version None)
Quarter: 2007Q1

REPORT INFORMATION
  Report Type: 
  Country: None (occurrence: None)
  Receive Date: 20070302
  Receipt Date: 20070221
  Transmission Date: 20070707
  Serious: Yes (Hospitalization)
  Sender: FDA-Public Use
  Company Number: FR-GLAXOSMITHKLINE-B0459922A

PATIENT
  Age: 60 Year
  Sex: Male

DRUGS (9)
  1. AUGMENTIN '125' [Suspect]
     Route: 042
     Dates: start: 20070119
  2. ALDACTONE [Suspect]
     Dosage: 25MG PER DAY
     Route: 048
     Dates: end: 20070126
  3. CORDARONE [Suspect]
     Dosage: 6UNIT PER DAY
     Route: 048
     Dates: start: 20070123, end: 20070126
  4. OFLOCET 200 MG [Suspect]
     Route: 048
     Dates: start: 20070120, end: 20070125
  5. TRIATEC 5 MG [Suspect]
     Dosage: 10MG PER DAY
     Route: 048
     Dates: end: 20070126
  6. PRAVASTATIN [Suspect]
     Dosage: 20MG PER DAY
     Route: 048
  7. SINTROM [Concomitant]
     Route: 065
  8. LASIX [Concomitant]
     Route: 065
  9. DIFFU K [Concomitant]
     Route: 065

REACTIONS (3)
  - BLOOD CREATININE INCREASED [None]
  - CARDIAC FAILURE [None]
  - TRANSAMINASES INCREASED [None]
